FAERS Safety Report 5758736-6 (Version None)
Quarter: 2008Q2

REPORT INFORMATION
  Report Type: 
  Country: None (occurrence: None)
  Receive Date: 20080603
  Receipt Date: 20080603
  Transmission Date: 20081010
  Serious: Yes (Hospitalization)
  Sender: FDA-Public Use
  Company Number: None

PATIENT
  Age: 75 Year
  Sex: Male

DRUGS (2)
  1. MORPHINE [Suspect]
     Indication: PAIN
     Dosage: 15 MG TID PO
     Route: 048
     Dates: start: 20070330
  2. OXYCODONE HCL [Suspect]
     Indication: PAIN
     Dosage: 5 MG OTHER PO
     Route: 048
     Dates: start: 20070416, end: 20070426

REACTIONS (2)
  - CONSTIPATION [None]
  - ILEUS [None]
